FAERS Safety Report 11747072 (Version 1)
Quarter: 2015Q4

REPORT INFORMATION
  Report Type: Spontaneous
  Country: ES (occurrence: ES)
  Receive Date: 20151117
  Receipt Date: 20151117
  Transmission Date: 20160304
  Serious: Yes (Life-Threatening, Hospitalization)
  Sender: FDA-Public Use
  Company Number: ES-ELI_LILLY_AND_COMPANY-ES201511005070

PATIENT
  Age: 48 Year
  Sex: Female

DRUGS (2)
  1. VALPROIC ACID. [Suspect]
     Active Substance: VALPROIC ACID
     Indication: PRODUCT USED FOR UNKNOWN INDICATION
     Dosage: UNK
     Route: 065
  2. OLANZAPINE. [Suspect]
     Active Substance: OLANZAPINE
     Indication: PRODUCT USED FOR UNKNOWN INDICATION
     Route: 065

REACTIONS (10)
  - Somnolence [Unknown]
  - Depressed level of consciousness [Unknown]
  - Hypokalaemia [Recovering/Resolving]
  - Blood lactic acid increased [Recovering/Resolving]
  - Hypernatraemia [Recovering/Resolving]
  - Dysarthria [Unknown]
  - Intentional overdose [Recovered/Resolved]
  - Thrombocytopenia [Recovering/Resolving]
  - Suicide attempt [Recovered/Resolved]
  - Hyperammonaemia [Recovering/Resolving]
